FAERS Safety Report 15927190 (Version 1)
Quarter: 2019Q1

REPORT INFORMATION
  Report Type: Spontaneous
  Country: US (occurrence: US)
  Receive Date: 20190206
  Receipt Date: 20190206
  Transmission Date: 20190417
  Serious: No
  Sender: FDA-Public Use
  Company Number: US-BAUSCH-BL-2019-002353

PATIENT
  Sex: Female

DRUGS (4)
  1. ELIDEL [Suspect]
     Active Substance: PIMECROLIMUS
     Indication: SWELLING OF EYELID
  2. ELIDEL [Suspect]
     Active Substance: PIMECROLIMUS
     Indication: PRODUCT USE IN UNAPPROVED INDICATION
  3. ELIDEL [Suspect]
     Active Substance: PIMECROLIMUS
     Indication: PRURITUS
  4. ELIDEL [Suspect]
     Active Substance: PIMECROLIMUS
     Indication: EYELID EXFOLIATION
     Route: 061
     Dates: start: 201712, end: 2018

REACTIONS (1)
  - Drug ineffective for unapproved indication [Recovered/Resolved]
